FAERS Safety Report 18169808 (Version 2)
Quarter: 2021Q3

REPORT INFORMATION
  Report Type: Spontaneous
  Country: CA (occurrence: CA)
  Receive Date: 20200819
  Receipt Date: 20210720
  Transmission Date: 20211014
  Serious: Yes (Life-Threatening, Other)
  Sender: FDA-Public Use
  Company Number: CA-ACCORD-195879

PATIENT
  Age: 5 Year
  Sex: Male
  Weight: 20 kg

DRUGS (40)
  1. METHOTREXATE. [Suspect]
     Active Substance: METHOTREXATE
     Indication: BURKITT^S LYMPHOMA
     Dosage: 9.6 ML
     Route: 037
  2. METOCLOPRAMIDE. [Concomitant]
     Active Substance: METOCLOPRAMIDE
  3. TOBRAMYCIN. [Concomitant]
     Active Substance: TOBRAMYCIN
  4. CETIRIZINE [Concomitant]
     Active Substance: CETIRIZINE HYDROCHLORIDE
  5. DIMENHYDRINATE. [Concomitant]
     Active Substance: DIMENHYDRINATE
  6. DIPHENHYDRAMINE. [Concomitant]
     Active Substance: DIPHENHYDRAMINE
  7. FLUCONAZOLE. [Concomitant]
     Active Substance: FLUCONAZOLE
  8. FOLIC ACID. [Concomitant]
     Active Substance: FOLIC ACID
  9. MOXIFLOXACIN/MOXIFLOXACIN HYDROCHLORIDE [Concomitant]
     Active Substance: MOXIFLOXACIN
  10. PIPERACILLIN SODIUM/TAZOBACTAM SODIUM [Concomitant]
     Active Substance: PIPERACILLIN SODIUM\TAZOBACTAM SODIUM
     Route: 042
  11. RANITIDINE. [Concomitant]
     Active Substance: RANITIDINE
  12. HYDROMORPHONE/HYDROMORPHONE HYDROCHLORIDE [Concomitant]
     Active Substance: HYDROMORPHONE
  13. MEROPENEM. [Concomitant]
     Active Substance: MEROPENEM
     Route: 042
  14. PENTAMIDINE [Concomitant]
     Active Substance: PENTAMIDINE
  15. MACROGOL [Concomitant]
     Active Substance: POLYETHYLENE GLYCOLS
  16. POTASSIUM [Concomitant]
     Active Substance: POTASSIUM
  17. VANCOMYCIN [Concomitant]
     Active Substance: VANCOMYCIN
  18. ETOPOSIDE. [Suspect]
     Active Substance: ETOPOSIDE
     Indication: BURKITT^S LYMPHOMA
     Route: 042
  19. RITUXAN [Suspect]
     Active Substance: RITUXIMAB
     Indication: BURKITT^S LYMPHOMA
     Route: 042
  20. ETOPOSIDE. [Suspect]
     Active Substance: ETOPOSIDE
     Indication: BURKITT^S LYMPHOMA
     Route: 042
  21. RITUXAN [Suspect]
     Active Substance: RITUXIMAB
     Indication: BURKITT^S LYMPHOMA
     Route: 042
  22. HEPARIN [Concomitant]
     Active Substance: HEPARIN SODIUM
  23. HYDROXYZINE [Concomitant]
     Active Substance: HYDROXYZINE HYDROCHLORIDE
  24. KETAMINE [Concomitant]
     Active Substance: KETAMINE
  25. MYCAMINE [Concomitant]
     Active Substance: MICAFUNGIN SODIUM
     Route: 042
  26. ONDANSETRON [Concomitant]
     Active Substance: ONDANSETRON
  27. SULFAMETHOXAZOLE/TRIMETHOPRIM [Concomitant]
     Active Substance: SULFAMETHOXAZOLE\TRIMETHOPRIM
  28. HYDROCORTISONE. [Suspect]
     Active Substance: HYDROCORTISONE
     Indication: BURKITT^S LYMPHOMA
     Route: 037
  29. PARACETAMOL [Concomitant]
     Active Substance: ACETAMINOPHEN
  30. CIPROFLOXACIN. [Concomitant]
     Active Substance: CIPROFLOXACIN
  31. EPINEPHRINE. [Concomitant]
     Active Substance: EPINEPHRINE
  32. METRONIDAZOLE. [Concomitant]
     Active Substance: METRONIDAZOLE
  33. CYTARABINE/CYTARABINE HYDROCHLORIDE/CYTARABINE OCFOSFATE [Suspect]
     Active Substance: CYTARABINE
     Indication: BURKITT^S LYMPHOMA
     Route: 042
  34. CLONIDINE. [Concomitant]
     Active Substance: CLONIDINE
  35. FILGRASTIM [Concomitant]
     Active Substance: FILGRASTIM
  36. FUROSEMIDE. [Concomitant]
     Active Substance: FUROSEMIDE
  37. METHOTREXATE. [Suspect]
     Active Substance: METHOTREXATE
     Indication: BURKITT^S LYMPHOMA
     Route: 037
  38. CEFTAZIDIME/CEFTAZIDIME PENTAHYDRATE [Concomitant]
     Active Substance: CEFTAZIDIME
     Dosage: INJECTION
     Route: 030
  39. DEXAMETHASONE. [Concomitant]
     Active Substance: DEXAMETHASONE
  40. CYTARABINE/CYTARABINE HYDROCHLORIDE/CYTARABINE OCFOSFATE [Suspect]
     Active Substance: CYTARABINE
     Indication: BURKITT^S LYMPHOMA
     Route: 042

REACTIONS (4)
  - Aplastic anaemia [Unknown]
  - Febrile bone marrow aplasia [Unknown]
  - Full blood count decreased [Unknown]
  - Transfusion [Unknown]
